FAERS Safety Report 23444923 (Version 1)
Quarter: 2024Q1

REPORT INFORMATION
  Report Type: Report from Study
  Country: US (occurrence: US)
  Receive Date: 20240125
  Receipt Date: 20240125
  Transmission Date: 20240410
  Serious: Yes (Hospitalization, Other)
  Sender: FDA-Public Use
  Company Number: US-MALLINCKRODT-MNK202400381

PATIENT
  Age: 73 Year
  Sex: Male

DRUGS (2)
  1. CORTICOTROPIN [Suspect]
     Active Substance: CORTICOTROPIN
     Indication: Product used for unknown indication
     Dosage: UNKNOWN
  2. CORTICOTROPIN [Suspect]
     Active Substance: CORTICOTROPIN
     Dosage: UNK(WEANED DOSE)
     Dates: start: 202401, end: 20240101

REACTIONS (3)
  - Diabetes mellitus [Not Recovered/Not Resolved]
  - Coronary arterial stent insertion [Unknown]
  - Oedema [Unknown]

NARRATIVE: CASE EVENT DATE: 20240101
